FAERS Safety Report 6257434-2 (Version None)
Quarter: 2009Q3

REPORT INFORMATION
  Report Type: 
  Country: None (occurrence: None)
  Receive Date: 20090706
  Receipt Date: 20090630
  Transmission Date: 20100115
  Serious: Yes (Disabling)
  Sender: FDA-Public Use
  Company Number: BE-WYE-G03968109

PATIENT
  Age: 42 Year
  Sex: Male

DRUGS (1)
  1. EFFEXOR [Suspect]
     Indication: ANXIETY
     Dosage: NOT PROVIDED
     Dates: start: 20081201

REACTIONS (1)
  - VESTIBULAR NEURONITIS [None]
